FAERS Safety Report 5336115-3 (Version None)
Quarter: 2007Q2

REPORT INFORMATION
  Report Type: 
  Country: None (occurrence: None)
  Receive Date: 20070302
  Receipt Date: 20061107
  Transmission Date: 20071010
  Serious: No
  Sender: FDA-Public Use
  Company Number: PHEH2006US13945

PATIENT
  Age: 83 Year
  Sex: Male

DRUGS (13)
  1. ENABLEX(DARIFENACIN HYDROBROMIDE) TABLET [Suspect]
     Indication: HYPERTONIC BLADDER
     Dosage: 7.5 MG QD
     Dates: start: 20061031, end: 20061107
  2. FLOMAX [Concomitant]
  3. DIGOXIN [Concomitant]
  4. VERAPAMIL [Concomitant]
  5. LASIX [Concomitant]
  6. EFFEXOR [Concomitant]
  7. LEVOTHYROXINE SODIUM [Concomitant]
  8. PROTONIX (PANTROPRAZOLE) [Concomitant]
  9. ALLOPURINOL (ALLOPURINAL) [Concomitant]
  10. NIASPAN [Concomitant]
  11. SPIRIVA [Concomitant]
  12. ASPIRIN [Concomitant]
  13. NIFEREX (POLYSACCHARIDE-IRON COMPLEX) [Concomitant]

REACTIONS (1)
  - TONGUE DISCOLOURATION [None]
